FAERS Safety Report 4753877-4 (Version None)
Quarter: 2005Q3

REPORT INFORMATION
  Report Type: 
  Country: None (occurrence: None)
  Receive Date: 20050825
  Receipt Date: 20050809
  Transmission Date: 20060218
  Serious: Yes (Hospitalization)
  Sender: FDA-Public Use
  Company Number: 217074

PATIENT
  Age: 52 Year
  Sex: Male
  Weight: 87.7 kg

DRUGS (2)
  1. BEVACIZUMAB (BEVACIZUMAB) PWDR + SOLVENT, INFUSION SOLN, 100MG [Suspect]
     Indication: LIP AND/OR ORAL CAVITY CANCER
     Dosage: 15 MG/KG,Q3W, INTRAVENOUS
     Route: 042
     Dates: start: 20040831
  2. ERLOTINIB (ERLOTINIB) TABLET, 100MG [Suspect]
     Indication: LIP AND/OR ORAL CAVITY CANCER
     Dosage: 150 MG, QD, ORAL
     Route: 048
     Dates: start: 20040831

REACTIONS (6)
  - ABSCESS INTESTINAL [None]
  - ASCITES [None]
  - CONSTIPATION [None]
  - INTESTINAL PERFORATION [None]
  - LIP AND/OR ORAL CAVITY CANCER [None]
  - METASTASES TO PLEURA [None]
